FAERS Safety Report 12956319 (Version 1)
Quarter: 2016Q4

REPORT INFORMATION
  Report Type: Report from Study
  Country: JP (occurrence: JP)
  Receive Date: 20161118
  Receipt Date: 20161118
  Transmission Date: 20170207
  Serious: Yes (Other)
  Sender: FDA-Public Use
  Company Number: JP-VIFOR (INTERNATIONAL) INC.-VIT-2016-05796

PATIENT
  Age: 52 Year
  Sex: Male
  Weight: 45 kg

DRUGS (9)
  1. AMLODIN [Concomitant]
     Active Substance: AMLODIPINE BESYLATE
     Route: 048
  2. FOSRENOL [Concomitant]
     Active Substance: LANTHANUM CARBONATE
     Indication: HYPERPHOSPHATAEMIA
     Route: 048
  3. VELPHORO [Suspect]
     Active Substance: FERRIC OXYHYDROXIDE
     Indication: HYPERPHOSPHATAEMIA
     Route: 048
     Dates: start: 20160627, end: 20160829
  4. NESP [Concomitant]
     Active Substance: DARBEPOETIN ALFA
  5. COMPLAVIN [Concomitant]
     Active Substance: ASPIRIN\CLOPIDOGREL BISULFATE
     Route: 048
  6. REGPARA [Concomitant]
     Active Substance: CINACALCET HYDROCHLORIDE
     Route: 048
  7. COMPLAVIN [Concomitant]
     Active Substance: ASPIRIN\CLOPIDOGREL BISULFATE
     Route: 048
  8. NEXIUM [Concomitant]
     Active Substance: ESOMEPRAZOLE MAGNESIUM
     Indication: GASTROOESOPHAGEAL REFLUX DISEASE
     Route: 048
  9. CRESTOR [Concomitant]
     Active Substance: ROSUVASTATIN CALCIUM
     Indication: DYSLIPIDAEMIA
     Route: 048

REACTIONS (1)
  - Anal haemorrhage [Recovered/Resolved]

NARRATIVE: CASE EVENT DATE: 20160828
